FAERS Safety Report 8650281 (Version 2)
Quarter: 2013Q2

REPORT INFORMATION
  Report Type: Spontaneous
  Country: US (occurrence: US)
  Receive Date: 20120705
  Receipt Date: 20130523
  Transmission Date: 20140414
  Serious: Yes (Other)
  Sender: FDA-Public Use
  Company Number: US-PFIZER INC-2012158208

PATIENT
  Age: 48 Year
  Sex: Male

DRUGS (1)
  1. CHANTIX [Suspect]
     Dosage: UNK
     Dates: start: 20080908, end: 20081006

REACTIONS (3)
  - Suicidal ideation [Unknown]
  - Depression [Unknown]
  - Abnormal dreams [Unknown]
